FAERS Safety Report 5260785-1 (Version None)
Quarter: 2007Q1

REPORT INFORMATION
  Report Type: 
  Country: None (occurrence: None)
  Receive Date: 20061215
  Receipt Date: 20050329
  Transmission Date: 20070707
  Serious: Yes (Other)
  Sender: FDA-Public Use
  Company Number: 2005AP000162

PATIENT
  Sex: Male

DRUGS (6)
  1. SELEGILINE HCL [Suspect]
     Indication: PARKINSON'S DISEASE
     Dosage: 1 TAB;BID;PO
     Route: 048
     Dates: start: 20041201
  2. CHLORPROPAMIDE [Concomitant]
  3. HYDROCHLOROTHIAZIDE [Concomitant]
  4. ZESTRIL [Concomitant]
  5. FLOMAX [Concomitant]
  6. DARVOCET [Concomitant]

REACTIONS (6)
  - BALANCE DISORDER [None]
  - DRUG INEFFECTIVE [None]
  - FALL [None]
  - FEELING JITTERY [None]
  - PARKINSONISM [None]
  - TREMOR [None]
